FAERS Safety Report 5212987-8 (Version None)
Quarter: 2007Q1

REPORT INFORMATION
  Report Type: 
  Country: None (occurrence: None)
  Receive Date: 20070112
  Receipt Date: 20070102
  Transmission Date: 20070707
  Serious: Yes (Life-Threatening, Hospitalization)
  Sender: FDA-Public Use
  Company Number: GXKR2007GB00461

PATIENT
  Age: 89 Year
  Sex: Female
  Weight: 50 kg

DRUGS (6)
  1. CLARITHROMYCIN [Suspect]
     Indication: CELLULITIS
     Dosage: 500 MG, ORAL
     Route: 048
     Dates: start: 20060805, end: 20060806
  2. ASPIRIN [Concomitant]
  3. ATORVASTATIN CALCIUM [Concomitant]
  4. FRUSEMIDE [Concomitant]
  5. HYDROGEN PEROXIDE SOLUTION [Concomitant]
  6. RAMIPRIL [Concomitant]

REACTIONS (3)
  - DEHYDRATION [None]
  - FALL [None]
  - RENAL IMPAIRMENT [None]
